FAERS Safety Report 5592926-0 (Version None)
Quarter: 2008Q1

REPORT INFORMATION
  Report Type: 
  Country: None (occurrence: None)
  Receive Date: 20080114
  Receipt Date: 20080114
  Transmission Date: 20080703
  Serious: Yes (Life-Threatening, Hospitalization)
  Sender: FDA-Public Use
  Company Number: None

PATIENT
  Age: 50 Year
  Sex: Female
  Weight: 67.586 kg

DRUGS (4)
  1. CARIMUNE [Suspect]
     Indication: ASTHMA
     Dosage: Q MONTH IV
     Route: 042
     Dates: start: 20080110
  2. CARIMUNE [Suspect]
     Indication: BLOOD IMMUNOGLOBULIN A DECREASED
     Dosage: Q MONTH IV
     Route: 042
     Dates: start: 20080110
  3. CARIMUNE [Suspect]
     Indication: BLOOD IMMUNOGLOBULIN G DECREASED
     Dosage: Q MONTH IV
     Route: 042
     Dates: start: 20080110
  4. CARIMUNE [Suspect]
     Indication: SINUS DISORDER
     Dosage: Q MONTH IV
     Route: 042
     Dates: start: 20080110

REACTIONS (14)
  - ABDOMINAL DISCOMFORT [None]
  - ABNORMAL BEHAVIOUR [None]
  - ASTHMA [None]
  - BLOOD PRESSURE INCREASED [None]
  - BURNING SENSATION [None]
  - EAR DISCOMFORT [None]
  - EAR PAIN [None]
  - INFUSION RELATED REACTION [None]
  - MUSCLE DISORDER [None]
  - MUSCULOSKELETAL PAIN [None]
  - MYALGIA [None]
  - PAIN [None]
  - PRODUCTIVE COUGH [None]
  - RESTLESSNESS [None]
